FAERS Safety Report 6066695-4 (Version None)
Quarter: 2009Q1

REPORT INFORMATION
  Report Type: 
  Country: None (occurrence: None)
  Receive Date: 20090205
  Receipt Date: 20080205
  Transmission Date: 20090719
  Serious: No
  Sender: FDA-Public Use
  Company Number: US-ABBOTT-08P-163-0437079-00

PATIENT
  Sex: Female
  Weight: 45.4 kg

DRUGS (1)
  1. VICODIN [Suspect]
     Indication: BACK DISORDER
     Dosage: 1-2 TABS EVERY 6 HRS AS NEEDED
     Route: 048
     Dates: start: 20060101

REACTIONS (2)
  - HEADACHE [None]
  - NAUSEA [None]
